FAERS Safety Report 25788012 (Version 4)
Quarter: 2025Q4

REPORT INFORMATION
  Report Type: Report from Study
  Country: EU (occurrence: EU)
  Receive Date: 20250910
  Receipt Date: 20251113
  Transmission Date: 20260118
  Serious: Yes (Death, Hospitalization)
  Sender: MYLAN
  Company Number: EU-AstrazenecaRSG-2301-D926QC00001(Prod)000007

PATIENT
  Age: 49 Year
  Sex: Female
  Weight: 114 kg

DRUGS (132)
  1. PACLITAXEL [Suspect]
     Active Substance: PACLITAXEL
     Indication: Breast cancer
     Dosage: 80 MILLIGRAM/SQ. METER
     Route: 042
     Dates: start: 20250124, end: 20250124
  2. PACLITAXEL [Suspect]
     Active Substance: PACLITAXEL
     Dosage: 80 MILLIGRAM/SQ. METER
     Route: 042
     Dates: start: 20250124, end: 20250124
  3. PACLITAXEL [Suspect]
     Active Substance: PACLITAXEL
     Dosage: 80 MILLIGRAM/SQ. METER
     Dates: start: 20250124, end: 20250124
  4. PACLITAXEL [Suspect]
     Active Substance: PACLITAXEL
     Dosage: 80 MILLIGRAM/SQ. METER
     Dates: start: 20250124, end: 20250124
  5. PACLITAXEL [Suspect]
     Active Substance: PACLITAXEL
     Dosage: 80 MILLIGRAM/SQ. METER
     Route: 042
     Dates: start: 20250124, end: 20250704
  6. PACLITAXEL [Suspect]
     Active Substance: PACLITAXEL
     Dosage: 80 MILLIGRAM/SQ. METER
     Route: 042
     Dates: start: 20250124, end: 20250704
  7. PACLITAXEL [Suspect]
     Active Substance: PACLITAXEL
     Dosage: 80 MILLIGRAM/SQ. METER
     Dates: start: 20250124, end: 20250704
  8. PACLITAXEL [Suspect]
     Active Substance: PACLITAXEL
     Dosage: 80 MILLIGRAM/SQ. METER
     Dates: start: 20250124, end: 20250704
  9. PACLITAXEL [Suspect]
     Active Substance: PACLITAXEL
     Dosage: 80 MILLIGRAM/SQ. METER
     Dates: start: 20250131, end: 20250131
  10. PACLITAXEL [Suspect]
     Active Substance: PACLITAXEL
     Dosage: 80 MILLIGRAM/SQ. METER
     Route: 042
     Dates: start: 20250131, end: 20250131
  11. PACLITAXEL [Suspect]
     Active Substance: PACLITAXEL
     Dosage: 80 MILLIGRAM/SQ. METER
     Dates: start: 20250131, end: 20250131
  12. PACLITAXEL [Suspect]
     Active Substance: PACLITAXEL
     Dosage: 80 MILLIGRAM/SQ. METER
     Route: 042
     Dates: start: 20250131, end: 20250131
  13. PACLITAXEL [Suspect]
     Active Substance: PACLITAXEL
     Dosage: 80 MILLIGRAM/SQ. METER
     Route: 042
     Dates: start: 20250214, end: 20250214
  14. PACLITAXEL [Suspect]
     Active Substance: PACLITAXEL
     Dosage: 80 MILLIGRAM/SQ. METER
     Route: 042
     Dates: start: 20250214, end: 20250214
  15. PACLITAXEL [Suspect]
     Active Substance: PACLITAXEL
     Dosage: 80 MILLIGRAM/SQ. METER
     Dates: start: 20250214, end: 20250214
  16. PACLITAXEL [Suspect]
     Active Substance: PACLITAXEL
     Dosage: 80 MILLIGRAM/SQ. METER
     Dates: start: 20250214, end: 20250214
  17. PACLITAXEL [Suspect]
     Active Substance: PACLITAXEL
     Dosage: 80 MILLIGRAM/SQ. METER
     Dates: start: 20250221, end: 20250221
  18. PACLITAXEL [Suspect]
     Active Substance: PACLITAXEL
     Dosage: 80 MILLIGRAM/SQ. METER
     Route: 042
     Dates: start: 20250221, end: 20250221
  19. PACLITAXEL [Suspect]
     Active Substance: PACLITAXEL
     Dosage: 80 MILLIGRAM/SQ. METER
     Dates: start: 20250221, end: 20250221
  20. PACLITAXEL [Suspect]
     Active Substance: PACLITAXEL
     Dosage: 80 MILLIGRAM/SQ. METER
     Route: 042
     Dates: start: 20250221, end: 20250221
  21. PACLITAXEL [Suspect]
     Active Substance: PACLITAXEL
     Dosage: 80 MILLIGRAM/SQ. METER
     Route: 042
     Dates: start: 20250228, end: 20250228
  22. PACLITAXEL [Suspect]
     Active Substance: PACLITAXEL
     Dosage: 80 MILLIGRAM/SQ. METER
     Route: 042
     Dates: start: 20250228, end: 20250228
  23. PACLITAXEL [Suspect]
     Active Substance: PACLITAXEL
     Dosage: 80 MILLIGRAM/SQ. METER
     Dates: start: 20250228, end: 20250228
  24. PACLITAXEL [Suspect]
     Active Substance: PACLITAXEL
     Dosage: 80 MILLIGRAM/SQ. METER
     Dates: start: 20250228, end: 20250228
  25. PACLITAXEL [Suspect]
     Active Substance: PACLITAXEL
     Dosage: 80 MILLIGRAM/SQ. METER
     Route: 042
     Dates: start: 20250307, end: 20250307
  26. PACLITAXEL [Suspect]
     Active Substance: PACLITAXEL
     Dosage: 80 MILLIGRAM/SQ. METER
     Dates: start: 20250307, end: 20250307
  27. PACLITAXEL [Suspect]
     Active Substance: PACLITAXEL
     Dosage: 80 MILLIGRAM/SQ. METER
     Dates: start: 20250307, end: 20250307
  28. PACLITAXEL [Suspect]
     Active Substance: PACLITAXEL
     Dosage: 80 MILLIGRAM/SQ. METER
     Route: 042
     Dates: start: 20250307, end: 20250307
  29. PACLITAXEL [Suspect]
     Active Substance: PACLITAXEL
     Dosage: 80 MILLIGRAM/SQ. METER
     Dates: start: 20250320, end: 20250320
  30. PACLITAXEL [Suspect]
     Active Substance: PACLITAXEL
     Dosage: 80 MILLIGRAM/SQ. METER
     Dates: start: 20250320, end: 20250320
  31. PACLITAXEL [Suspect]
     Active Substance: PACLITAXEL
     Dosage: 80 MILLIGRAM/SQ. METER
     Route: 042
     Dates: start: 20250320, end: 20250320
  32. PACLITAXEL [Suspect]
     Active Substance: PACLITAXEL
     Dosage: 80 MILLIGRAM/SQ. METER
     Route: 042
     Dates: start: 20250320, end: 20250320
  33. PACLITAXEL [Suspect]
     Active Substance: PACLITAXEL
     Dosage: 80 MILLIGRAM/SQ. METER
     Dates: start: 20250328, end: 20250328
  34. PACLITAXEL [Suspect]
     Active Substance: PACLITAXEL
     Dosage: 80 MILLIGRAM/SQ. METER
     Route: 042
     Dates: start: 20250328, end: 20250328
  35. PACLITAXEL [Suspect]
     Active Substance: PACLITAXEL
     Dosage: 80 MILLIGRAM/SQ. METER
     Route: 042
     Dates: start: 20250328, end: 20250328
  36. PACLITAXEL [Suspect]
     Active Substance: PACLITAXEL
     Dosage: 80 MILLIGRAM/SQ. METER
     Dates: start: 20250328, end: 20250328
  37. PACLITAXEL [Suspect]
     Active Substance: PACLITAXEL
     Dosage: 80 MILLIGRAM/SQ. METER
     Dates: start: 20250404, end: 20250404
  38. PACLITAXEL [Suspect]
     Active Substance: PACLITAXEL
     Dosage: 80 MILLIGRAM/SQ. METER
     Dates: start: 20250404, end: 20250404
  39. PACLITAXEL [Suspect]
     Active Substance: PACLITAXEL
     Dosage: 80 MILLIGRAM/SQ. METER
     Route: 042
     Dates: start: 20250404, end: 20250404
  40. PACLITAXEL [Suspect]
     Active Substance: PACLITAXEL
     Dosage: 80 MILLIGRAM/SQ. METER
     Route: 042
     Dates: start: 20250404, end: 20250404
  41. PACLITAXEL [Suspect]
     Active Substance: PACLITAXEL
     Dosage: 80 MILLIGRAM/SQ. METER
     Route: 042
     Dates: start: 20250410, end: 20250410
  42. PACLITAXEL [Suspect]
     Active Substance: PACLITAXEL
     Dosage: 80 MILLIGRAM/SQ. METER
     Route: 042
     Dates: start: 20250410, end: 20250410
  43. PACLITAXEL [Suspect]
     Active Substance: PACLITAXEL
     Dosage: 80 MILLIGRAM/SQ. METER
     Dates: start: 20250410, end: 20250410
  44. PACLITAXEL [Suspect]
     Active Substance: PACLITAXEL
     Dosage: 80 MILLIGRAM/SQ. METER
     Dates: start: 20250410, end: 20250410
  45. PACLITAXEL [Suspect]
     Active Substance: PACLITAXEL
     Dosage: 80 MILLIGRAM/SQ. METER
     Route: 042
     Dates: start: 20250417, end: 20250417
  46. PACLITAXEL [Suspect]
     Active Substance: PACLITAXEL
     Dosage: 80 MILLIGRAM/SQ. METER
     Route: 042
     Dates: start: 20250417, end: 20250417
  47. PACLITAXEL [Suspect]
     Active Substance: PACLITAXEL
     Dosage: 80 MILLIGRAM/SQ. METER
     Dates: start: 20250417, end: 20250417
  48. PACLITAXEL [Suspect]
     Active Substance: PACLITAXEL
     Dosage: 80 MILLIGRAM/SQ. METER
     Dates: start: 20250417, end: 20250417
  49. EPIRUBICIN [Suspect]
     Active Substance: EPIRUBICIN
     Indication: Breast cancer
     Dosage: 90 MILLILITRE PER SQUARE METRE
     Dates: start: 20250505, end: 20250704
  50. EPIRUBICIN [Suspect]
     Active Substance: EPIRUBICIN
     Dosage: 90 MILLILITRE PER SQUARE METRE
     Route: 042
     Dates: start: 20250505, end: 20250704
  51. EPIRUBICIN [Suspect]
     Active Substance: EPIRUBICIN
     Dosage: 90 MILLILITRE PER SQUARE METRE
     Route: 042
     Dates: start: 20250505, end: 20250704
  52. EPIRUBICIN [Suspect]
     Active Substance: EPIRUBICIN
     Dosage: 90 MILLILITRE PER SQUARE METRE
     Dates: start: 20250505, end: 20250704
  53. CARBOPLATIN [Suspect]
     Active Substance: CARBOPLATIN
     Indication: Breast cancer
     Dosage: UNK MG/M2
     Dates: start: 20250124, end: 20250124
  54. CARBOPLATIN [Suspect]
     Active Substance: CARBOPLATIN
     Dosage: UNK MG/M2
     Dates: start: 20250124, end: 20250124
  55. CARBOPLATIN [Suspect]
     Active Substance: CARBOPLATIN
     Dosage: UNK MG/M2
     Route: 065
     Dates: start: 20250124, end: 20250124
  56. CARBOPLATIN [Suspect]
     Active Substance: CARBOPLATIN
     Dosage: UNK MG/M2
     Route: 065
     Dates: start: 20250124, end: 20250124
  57. CARBOPLATIN [Suspect]
     Active Substance: CARBOPLATIN
     Dosage: 225 MILLIGRAM/SQ. METER
     Route: 065
     Dates: start: 20250124, end: 20250417
  58. CARBOPLATIN [Suspect]
     Active Substance: CARBOPLATIN
     Dosage: 225 MILLIGRAM/SQ. METER
     Dates: start: 20250124, end: 20250417
  59. CARBOPLATIN [Suspect]
     Active Substance: CARBOPLATIN
     Dosage: 225 MILLIGRAM/SQ. METER
     Route: 065
     Dates: start: 20250124, end: 20250417
  60. CARBOPLATIN [Suspect]
     Active Substance: CARBOPLATIN
     Dosage: 225 MILLIGRAM/SQ. METER
     Dates: start: 20250124, end: 20250417
  61. CARBOPLATIN [Suspect]
     Active Substance: CARBOPLATIN
     Dosage: UNK MG/M2
     Dates: start: 20250131, end: 20250131
  62. CARBOPLATIN [Suspect]
     Active Substance: CARBOPLATIN
     Dosage: UNK MG/M2
     Dates: start: 20250131, end: 20250131
  63. CARBOPLATIN [Suspect]
     Active Substance: CARBOPLATIN
     Dosage: UNK MG/M2
     Route: 065
     Dates: start: 20250131, end: 20250131
  64. CARBOPLATIN [Suspect]
     Active Substance: CARBOPLATIN
     Dosage: UNK MG/M2
     Route: 065
     Dates: start: 20250131, end: 20250131
  65. CARBOPLATIN [Suspect]
     Active Substance: CARBOPLATIN
     Dosage: UNK MG/M2
     Dates: start: 20250214, end: 20250214
  66. CARBOPLATIN [Suspect]
     Active Substance: CARBOPLATIN
     Dosage: UNK MG/M2
     Dates: start: 20250214, end: 20250214
  67. CARBOPLATIN [Suspect]
     Active Substance: CARBOPLATIN
     Dosage: UNK MG/M2
     Route: 065
     Dates: start: 20250214, end: 20250214
  68. CARBOPLATIN [Suspect]
     Active Substance: CARBOPLATIN
     Dosage: UNK MG/M2
     Route: 065
     Dates: start: 20250214, end: 20250214
  69. CARBOPLATIN [Suspect]
     Active Substance: CARBOPLATIN
     Dosage: UNK MG/M2
     Route: 065
     Dates: start: 20250221, end: 20250221
  70. CARBOPLATIN [Suspect]
     Active Substance: CARBOPLATIN
     Dosage: UNK MG/M2
     Dates: start: 20250221, end: 20250221
  71. CARBOPLATIN [Suspect]
     Active Substance: CARBOPLATIN
     Dosage: UNK MG/M2
     Dates: start: 20250221, end: 20250221
  72. CARBOPLATIN [Suspect]
     Active Substance: CARBOPLATIN
     Dosage: UNK MG/M2
     Route: 065
     Dates: start: 20250221, end: 20250221
  73. CARBOPLATIN [Suspect]
     Active Substance: CARBOPLATIN
     Dosage: UNK MG/M2
     Route: 065
     Dates: start: 20250228, end: 20250228
  74. CARBOPLATIN [Suspect]
     Active Substance: CARBOPLATIN
     Dosage: UNK MG/M2
     Dates: start: 20250228, end: 20250228
  75. CARBOPLATIN [Suspect]
     Active Substance: CARBOPLATIN
     Dosage: UNK MG/M2
     Route: 065
     Dates: start: 20250228, end: 20250228
  76. CARBOPLATIN [Suspect]
     Active Substance: CARBOPLATIN
     Dosage: UNK MG/M2
     Dates: start: 20250228, end: 20250228
  77. CARBOPLATIN [Suspect]
     Active Substance: CARBOPLATIN
     Dosage: UNK MG/M2
     Route: 065
     Dates: start: 20250307, end: 20250307
  78. CARBOPLATIN [Suspect]
     Active Substance: CARBOPLATIN
     Dosage: UNK MG/M2
     Route: 065
     Dates: start: 20250307, end: 20250307
  79. CARBOPLATIN [Suspect]
     Active Substance: CARBOPLATIN
     Dosage: UNK MG/M2
     Dates: start: 20250307, end: 20250307
  80. CARBOPLATIN [Suspect]
     Active Substance: CARBOPLATIN
     Dosage: UNK MG/M2
     Dates: start: 20250307, end: 20250307
  81. CARBOPLATIN [Suspect]
     Active Substance: CARBOPLATIN
     Dosage: UNK MG/M2
     Dates: start: 20250320, end: 20250320
  82. CARBOPLATIN [Suspect]
     Active Substance: CARBOPLATIN
     Dosage: UNK MG/M2
     Dates: start: 20250320, end: 20250320
  83. CARBOPLATIN [Suspect]
     Active Substance: CARBOPLATIN
     Dosage: UNK MG/M2
     Route: 065
     Dates: start: 20250320, end: 20250320
  84. CARBOPLATIN [Suspect]
     Active Substance: CARBOPLATIN
     Dosage: UNK MG/M2
     Route: 065
     Dates: start: 20250320, end: 20250320
  85. CARBOPLATIN [Suspect]
     Active Substance: CARBOPLATIN
     Dosage: UNK MG/M2
     Route: 065
     Dates: start: 20250328, end: 20250328
  86. CARBOPLATIN [Suspect]
     Active Substance: CARBOPLATIN
     Dosage: UNK MG/M2
     Route: 065
     Dates: start: 20250328, end: 20250328
  87. CARBOPLATIN [Suspect]
     Active Substance: CARBOPLATIN
     Dosage: UNK MG/M2
     Dates: start: 20250328, end: 20250328
  88. CARBOPLATIN [Suspect]
     Active Substance: CARBOPLATIN
     Dosage: UNK MG/M2
     Dates: start: 20250328, end: 20250328
  89. CARBOPLATIN [Suspect]
     Active Substance: CARBOPLATIN
     Dosage: UNK MG/M2
     Route: 065
     Dates: start: 20250404, end: 20250404
  90. CARBOPLATIN [Suspect]
     Active Substance: CARBOPLATIN
     Dosage: UNK MG/M2
     Route: 065
     Dates: start: 20250404, end: 20250404
  91. CARBOPLATIN [Suspect]
     Active Substance: CARBOPLATIN
     Dosage: UNK MG/M2
     Dates: start: 20250404, end: 20250404
  92. CARBOPLATIN [Suspect]
     Active Substance: CARBOPLATIN
     Dosage: UNK MG/M2
     Dates: start: 20250404, end: 20250404
  93. CARBOPLATIN [Suspect]
     Active Substance: CARBOPLATIN
     Dosage: UNK MG/M2
     Route: 065
     Dates: start: 20250410, end: 20250410
  94. CARBOPLATIN [Suspect]
     Active Substance: CARBOPLATIN
     Dosage: UNK MG/M2
     Dates: start: 20250410, end: 20250410
  95. CARBOPLATIN [Suspect]
     Active Substance: CARBOPLATIN
     Dosage: UNK MG/M2
     Dates: start: 20250410, end: 20250410
  96. CARBOPLATIN [Suspect]
     Active Substance: CARBOPLATIN
     Dosage: UNK MG/M2
     Route: 065
     Dates: start: 20250410, end: 20250410
  97. CARBOPLATIN [Suspect]
     Active Substance: CARBOPLATIN
     Dosage: UNK MG/M2
     Route: 065
     Dates: start: 20250417, end: 20250417
  98. CARBOPLATIN [Suspect]
     Active Substance: CARBOPLATIN
     Dosage: UNK MG/M2
     Dates: start: 20250417, end: 20250417
  99. CARBOPLATIN [Suspect]
     Active Substance: CARBOPLATIN
     Dosage: UNK MG/M2
     Dates: start: 20250417, end: 20250417
  100. CARBOPLATIN [Suspect]
     Active Substance: CARBOPLATIN
     Dosage: UNK MG/M2
     Route: 065
     Dates: start: 20250417, end: 20250417
  101. PEMBROLIZUMAB [Suspect]
     Active Substance: PEMBROLIZUMAB
     Indication: Breast cancer
     Dosage: 200 MILLIGRAM
     Dates: start: 20250124, end: 20250124
  102. PEMBROLIZUMAB [Suspect]
     Active Substance: PEMBROLIZUMAB
     Dosage: 200 MILLIGRAM
     Dates: start: 20250124, end: 20250124
  103. PEMBROLIZUMAB [Suspect]
     Active Substance: PEMBROLIZUMAB
     Dosage: 200 MILLIGRAM
     Route: 042
     Dates: start: 20250124, end: 20250124
  104. PEMBROLIZUMAB [Suspect]
     Active Substance: PEMBROLIZUMAB
     Dosage: 200 MILLIGRAM
     Route: 042
     Dates: start: 20250124, end: 20250124
  105. PEMBROLIZUMAB [Suspect]
     Active Substance: PEMBROLIZUMAB
     Dosage: 200 MILLIGRAM
     Route: 042
     Dates: start: 20250221, end: 20250221
  106. PEMBROLIZUMAB [Suspect]
     Active Substance: PEMBROLIZUMAB
     Dosage: 200 MILLIGRAM
     Dates: start: 20250221, end: 20250221
  107. PEMBROLIZUMAB [Suspect]
     Active Substance: PEMBROLIZUMAB
     Dosage: 200 MILLIGRAM
     Dates: start: 20250221, end: 20250221
  108. PEMBROLIZUMAB [Suspect]
     Active Substance: PEMBROLIZUMAB
     Dosage: 200 MILLIGRAM
     Route: 042
     Dates: start: 20250221, end: 20250221
  109. PEMBROLIZUMAB [Suspect]
     Active Substance: PEMBROLIZUMAB
     Dosage: 200 MILLIGRAM
     Dates: start: 20250320, end: 20250320
  110. PEMBROLIZUMAB [Suspect]
     Active Substance: PEMBROLIZUMAB
     Dosage: 200 MILLIGRAM
     Dates: start: 20250320, end: 20250320
  111. PEMBROLIZUMAB [Suspect]
     Active Substance: PEMBROLIZUMAB
     Dosage: 200 MILLIGRAM
     Route: 042
     Dates: start: 20250320, end: 20250320
  112. PEMBROLIZUMAB [Suspect]
     Active Substance: PEMBROLIZUMAB
     Dosage: 200 MILLIGRAM
     Route: 042
     Dates: start: 20250320, end: 20250320
  113. PEMBROLIZUMAB [Suspect]
     Active Substance: PEMBROLIZUMAB
     Dosage: 200 MILLIGRAM
     Dates: start: 20250410, end: 20250410
  114. PEMBROLIZUMAB [Suspect]
     Active Substance: PEMBROLIZUMAB
     Dosage: 200 MILLIGRAM
     Dates: start: 20250410, end: 20250410
  115. PEMBROLIZUMAB [Suspect]
     Active Substance: PEMBROLIZUMAB
     Dosage: 200 MILLIGRAM
     Route: 042
     Dates: start: 20250410, end: 20250410
  116. PEMBROLIZUMAB [Suspect]
     Active Substance: PEMBROLIZUMAB
     Dosage: 200 MILLIGRAM
     Route: 042
     Dates: start: 20250410, end: 20250410
  117. PEMBROLIZUMAB [Suspect]
     Active Substance: PEMBROLIZUMAB
     Dosage: 200 MILLIGRAM
     Route: 042
     Dates: start: 20250505, end: 20250505
  118. PEMBROLIZUMAB [Suspect]
     Active Substance: PEMBROLIZUMAB
     Dosage: 200 MILLIGRAM
     Route: 042
     Dates: start: 20250505, end: 20250505
  119. PEMBROLIZUMAB [Suspect]
     Active Substance: PEMBROLIZUMAB
     Dosage: 200 MILLIGRAM
     Dates: start: 20250505, end: 20250505
  120. PEMBROLIZUMAB [Suspect]
     Active Substance: PEMBROLIZUMAB
     Dosage: 200 MILLIGRAM
     Dates: start: 20250505, end: 20250505
  121. PEMBROLIZUMAB [Suspect]
     Active Substance: PEMBROLIZUMAB
     Dosage: 200 MILLIGRAM
     Route: 042
     Dates: start: 20250605, end: 20250605
  122. PEMBROLIZUMAB [Suspect]
     Active Substance: PEMBROLIZUMAB
     Dosage: 200 MILLIGRAM
     Dates: start: 20250605, end: 20250605
  123. PEMBROLIZUMAB [Suspect]
     Active Substance: PEMBROLIZUMAB
     Dosage: 200 MILLIGRAM
     Dates: start: 20250605, end: 20250605
  124. PEMBROLIZUMAB [Suspect]
     Active Substance: PEMBROLIZUMAB
     Dosage: 200 MILLIGRAM
     Route: 042
     Dates: start: 20250605, end: 20250605
  125. PEMBROLIZUMAB [Suspect]
     Active Substance: PEMBROLIZUMAB
     Dosage: 200 MILLIGRAM
     Route: 042
     Dates: start: 20250704, end: 20250704
  126. PEMBROLIZUMAB [Suspect]
     Active Substance: PEMBROLIZUMAB
     Dosage: 200 MILLIGRAM
     Dates: start: 20250704, end: 20250704
  127. PEMBROLIZUMAB [Suspect]
     Active Substance: PEMBROLIZUMAB
     Dosage: 200 MILLIGRAM
     Dates: start: 20250704, end: 20250704
  128. PEMBROLIZUMAB [Suspect]
     Active Substance: PEMBROLIZUMAB
     Dosage: 200 MILLIGRAM
     Route: 042
     Dates: start: 20250704, end: 20250704
  129. CYCLOPHOSPHAMIDE [Suspect]
     Active Substance: CYCLOPHOSPHAMIDE
     Indication: Breast cancer
     Dosage: 600 MILLIGRAM/SQ. METER
     Dates: start: 20250505, end: 20250704
  130. CYCLOPHOSPHAMIDE [Suspect]
     Active Substance: CYCLOPHOSPHAMIDE
     Dosage: 600 MILLIGRAM/SQ. METER
     Route: 042
     Dates: start: 20250505, end: 20250704
  131. CYCLOPHOSPHAMIDE [Suspect]
     Active Substance: CYCLOPHOSPHAMIDE
     Dosage: 600 MILLIGRAM/SQ. METER
     Route: 042
     Dates: start: 20250505, end: 20250704
  132. CYCLOPHOSPHAMIDE [Suspect]
     Active Substance: CYCLOPHOSPHAMIDE
     Dosage: 600 MILLIGRAM/SQ. METER
     Dates: start: 20250505, end: 20250704

REACTIONS (2)
  - Cell death [Fatal]
  - Cholestasis [Fatal]

NARRATIVE: CASE EVENT DATE: 20250813
